APPROVED DRUG PRODUCT: GLUCAGON
Active Ingredient: GLUCAGON HYDROCHLORIDE
Strength: EQ 1MG BASE/VIAL
Dosage Form/Route: POWDER;INTRAMUSCULAR, INTRAVENOUS
Application: N201849 | Product #001
Applicant: FRESENIUS KABI USA LLC
Approved: May 8, 2015 | RLD: Yes | RS: Yes | Type: RX